FAERS Safety Report 7109658-X (Version None)
Quarter: 2010Q4

REPORT INFORMATION
  Report Type: 
  Country: None (occurrence: None)
  Receive Date: 20101115
  Receipt Date: 20101115
  Transmission Date: 20110411
  Serious: Yes (Hospitalization)
  Sender: FDA-Public Use
  Company Number: None

PATIENT
  Age: 51 Year
  Sex: Male

DRUGS (1)
  1. WARFARIN SODIUM [Suspect]
     Dosage: 5 MG DAILY PO
     Route: 048

REACTIONS (2)
  - CHEST PAIN [None]
  - INTERNATIONAL NORMALISED RATIO INCREASED [None]
